FAERS Safety Report 25245678 (Version 1)
Quarter: 2025Q2

REPORT INFORMATION
  Report Type: Spontaneous
  Country: US (occurrence: None)
  Receive Date: 20250427
  Receipt Date: 20250427
  Transmission Date: 20250717
  Serious: Yes (Other)
  Sender: FDA-CTU
  Company Number: None

PATIENT
  Age: 57 Week
  Sex: Female

DRUGS (1)
  1. JEUVEAU [Suspect]
     Active Substance: PRABOTULINUMTOXINA-XVFS

REACTIONS (7)
  - Migraine [None]
  - Contusion [None]
  - Dermatochalasis [None]
  - Facial pain [None]
  - Paraesthesia [None]
  - Panic reaction [None]
  - Deformity [None]

NARRATIVE: CASE EVENT DATE: 20240517
